FAERS Safety Report 17455004 (Version 1)
Quarter: 2020Q1

REPORT INFORMATION
  Report Type: Report from Study
  Country: NL (occurrence: NL)
  Receive Date: 20200225
  Receipt Date: 20200225
  Transmission Date: 20200409
  Serious: Yes (Hospitalization, Other)
  Sender: FDA-Public Use
  Company Number: NL-ROCHE-2556549

PATIENT

DRUGS (1)
  1. RITUXIMAB. [Suspect]
     Active Substance: RITUXIMAB
     Indication: RHEUMATOID ARTHRITIS
     Dosage: 500 MG
     Route: 041

REACTIONS (10)
  - Wound dehiscence [Unknown]
  - Oesophageal carcinoma [Unknown]
  - Cardiac failure acute [Unknown]
  - Aortic dissection [Unknown]
  - Cardiac arrest [Unknown]
  - Pneumonia streptococcal [Unknown]
  - Pulmonary embolism [Unknown]
  - Myocardial infarction [Unknown]
  - Bronchitis [Unknown]
  - Atrial fibrillation [Unknown]
